FAERS Safety Report 6595091-6 (Version None)
Quarter: 2010Q1

REPORT INFORMATION
  Report Type: 
  Country: None (occurrence: None)
  Receive Date: 20100222
  Receipt Date: 20100210
  Transmission Date: 20100710
  Serious: Yes (Hospitalization, Other)
  Sender: FDA-Public Use
  Company Number: GB-ELI_LILLY_AND_COMPANY-GB201002002952

PATIENT
  Age: 82 Year
  Sex: Female

DRUGS (3)
  1. ZYPREXA [Suspect]
     Indication: BIPOLAR DISORDER
     Dosage: 5 MG, EACH EVENING
     Dates: end: 20091101
  2. VENLAFAXINE [Concomitant]
     Dosage: 225 MG, UNKNOWN
  3. TEMAZEPAM [Concomitant]
     Dosage: 10 MG, UNKNOWN

REACTIONS (1)
  - MYOCARDIAL INFARCTION [None]
